FAERS Safety Report 18221769 (Version 2)
Quarter: 2020Q3

REPORT INFORMATION
  Report Type: Other
  Country: UG (occurrence: UG)
  Receive Date: 20200902
  Receipt Date: 20200923
  Transmission Date: 20201103
  Serious: Yes (Other)
  Sender: FDA-Public Use
  Company Number: UG-MACLEODS PHARMACEUTICALS US LTD-MAC2020027826

PATIENT

DRUGS (3)
  1. TENOFOVIR DISOPROXIL MALEATE?GENERIC MYLAN [Suspect]
     Active Substance: TENOFOVIR DISOPROXIL MALEATE
     Indication: HIV INFECTION
     Dosage: 300 MILLIGRAM, QD, 1 COURSE, PRIOR TO CONCEPTION, DURING FIRST TRIMESTER
     Route: 048
     Dates: start: 20180320
  2. LAMIVUDINE. [Suspect]
     Active Substance: LAMIVUDINE
     Indication: HIV INFECTION
     Dosage: 300 MILLIGRAM, QD, 1 COURSE, PRIOR TO CONCEPTION, DURING FIRST TRIMESTER
     Route: 048
     Dates: start: 20180320
  3. TIVICAY [Suspect]
     Active Substance: DOLUTEGRAVIR SODIUM
     Indication: HIV INFECTION
     Dosage: 50 MILLIGRAM, QD, 1 COURSE, PRIOR TO CONCEPTION, DURING FIRST TRIMESTER
     Route: 048
     Dates: start: 20180320

REACTIONS (2)
  - Stillbirth [Unknown]
  - Maternal exposure during pregnancy [Unknown]

NARRATIVE: CASE EVENT DATE: 20200220
